FAERS Safety Report 8810304 (Version 1)
Quarter: 2012Q4

REPORT INFORMATION
  Report Type: 
  Country: MY (occurrence: MY)
  Receive Date: 20120926
  Receipt Date: 20120926
  Transmission Date: 20130627
  Serious: Yes (Death, Other)
  Sender: FDA-Public Use
  Company Number: PHHO2006MY00505

PATIENT
  Age: 53 Year
  Sex: Female
  Weight: 50 kg

DRUGS (1)
  1. GLIVEC [Suspect]
     Indication: GASTROINTESTINAL STROMAL TUMOUR
     Dosage: 400 mg, QD
     Route: 048
     Dates: start: 20040109, end: 200511

REACTIONS (6)
  - Neoplasm progression [Fatal]
  - Malignant neoplasm progression [Fatal]
  - Hydronephrosis [Unknown]
  - Pelvic mass [Unknown]
  - Weight decreased [Unknown]
  - Abdominal discomfort [Unknown]
